FAERS Safety Report 8080638-3 (Version None)
Quarter: 2012Q1

REPORT INFORMATION
  Report Type: 
  Country: None (occurrence: None)
  Receive Date: 20120130
  Receipt Date: 20120125
  Transmission Date: 20120608
  Serious: Yes (Hospitalization, Other)
  Sender: FDA-Public Use
  Company Number: FR-ROCHE-1014128

PATIENT
  Sex: Male
  Weight: 85 kg

DRUGS (3)
  1. VEMURAFENIB [Suspect]
     Indication: METASTATIC MALIGNANT MELANOMA
     Route: 048
     Dates: start: 20110819, end: 20111012
  2. OXAZEPAM [Suspect]
     Indication: ANXIETY
     Dates: start: 20110801
  3. VEMURAFENIB [Suspect]
     Route: 048
     Dates: start: 20111017

REACTIONS (4)
  - DIARRHOEA [None]
  - VOMITING [None]
  - DISEASE PROGRESSION [None]
  - ASTHENIA [None]
